FAERS Safety Report 23661231 (Version 5)
Quarter: 2024Q3

REPORT INFORMATION
  Report Type: Spontaneous
  Country: CA (occurrence: CA)
  Receive Date: 20240322
  Receipt Date: 20240902
  Transmission Date: 20241016
  Serious: Yes (Hospitalization)
  Sender: SANDOZ
  Company Number: CA-002147023-NVSC2024CA059685

PATIENT
  Age: 76 Year
  Sex: Male
  Weight: 105 kg

DRUGS (21)
  1. CITALOPRAM [Suspect]
     Active Substance: CITALOPRAM\CITALOPRAM HYDROBROMIDE
     Indication: Product used for unknown indication
     Dosage: 20 MG, QD (FOR 03 MONTHS)
     Route: 065
  2. CLONAZEPAM [Suspect]
     Active Substance: CLONAZEPAM
     Indication: Product used for unknown indication
     Dosage: 0.5 MG, QD
     Route: 065
  3. OLANZAPINE [Suspect]
     Active Substance: OLANZAPINE
     Indication: Dementia
     Dosage: 2.5 MG, QD (FOR 01 MONTH)
     Route: 065
  4. OLANZAPINE [Suspect]
     Active Substance: OLANZAPINE
     Indication: Social (pragmatic) communication disorder
     Dosage: 2.5 MG, QD
     Route: 065
  5. OLANZAPINE [Suspect]
     Active Substance: OLANZAPINE
     Indication: Post-traumatic stress disorder
     Dosage: UNK
     Route: 048
  6. OLANZAPINE [Suspect]
     Active Substance: OLANZAPINE
     Indication: Agitation
  7. OLANZAPINE [Suspect]
     Active Substance: OLANZAPINE
     Indication: Injury
  8. QUETIAPINE [Suspect]
     Active Substance: QUETIAPINE
     Indication: Hallucination, visual
     Dosage: 100 MG, QD (FOR 02 MONTHS)
     Route: 048
  9. QUETIAPINE [Suspect]
     Active Substance: QUETIAPINE
     Dosage: 12.5 MG, QD (FOR 01 MONTH)
     Route: 065
  10. QUETIAPINE [Suspect]
     Active Substance: QUETIAPINE
     Indication: Accommodation disorder
     Dosage: 12.5 MG, TIW (FOR 01 MONTH)
     Route: 065
  11. QUETIAPINE [Suspect]
     Active Substance: QUETIAPINE
     Dosage: 25 MG, QD (FOR 01 MONTH)
     Route: 065
  12. QUETIAPINE [Suspect]
     Active Substance: QUETIAPINE
     Dosage: 25 MG, TID
     Route: 065
  13. RISPERIDONE [Suspect]
     Active Substance: RISPERIDONE
     Indication: Injury
     Dosage: 0.25 MG, BID
     Route: 065
  14. RIVASTIGMINE [Suspect]
     Active Substance: RIVASTIGMINE
     Dosage: 1.5 MG, QD
     Route: 065
  15. RIVASTIGMINE [Suspect]
     Active Substance: RIVASTIGMINE
     Indication: Dementia
     Dosage: 1.5 MG 1 EVERY .5 DAYS
     Route: 065
  16. RIVASTIGMINE [Suspect]
     Active Substance: RIVASTIGMINE
     Indication: Dementia
     Dosage: 13.3 MG
     Route: 062
  17. RISPERDAL [Suspect]
     Active Substance: RISPERIDONE
     Indication: Dementia
     Dosage: 1 EVERY .5 DAYS
     Route: 065
  18. TRAZODONE [Suspect]
     Active Substance: TRAZODONE HYDROCHLORIDE
     Dosage: 100 MG, QD
     Route: 065
  19. TRAZODONE [Suspect]
     Active Substance: TRAZODONE HYDROCHLORIDE
     Dosage: 25 MG, QD
     Route: 065
  20. TRAZODONE [Suspect]
     Active Substance: TRAZODONE HYDROCHLORIDE
     Dosage: 50 MG, QD
     Route: 065
  21. TRAZODONE [Suspect]
     Active Substance: TRAZODONE HYDROCHLORIDE
     Indication: Product used for unknown indication
     Dosage: 50 MG, TID
     Route: 065

REACTIONS (1)
  - Parkinsonism [Recovered/Resolved]
